FAERS Safety Report 5051873-3 (Version None)
Quarter: 2006Q3

REPORT INFORMATION
  Report Type: 
  Country: None (occurrence: None)
  Receive Date: 20060713
  Receipt Date: 20060713
  Transmission Date: 20061208
  Serious: Yes (Other)
  Sender: FDA-Public Use
  Company Number: None

PATIENT
  Age: 46 Year
  Sex: Male
  Weight: 76.1136 kg

DRUGS (4)
  1. ETOPOSIDE [Suspect]
     Indication: TESTIS CANCER
     Dosage: IV (525 ML/HR) ONCE DAILY
     Route: 042
     Dates: start: 20060703
  2. ETOPOSIDE [Suspect]
     Indication: TESTIS CANCER
     Dosage: IV (525 ML/HR) ONCE DAILY
     Route: 042
     Dates: start: 20060704
  3. ANZEMET [Concomitant]
  4. DECADRON [Concomitant]

REACTIONS (5)
  - CHEST PAIN [None]
  - DYSPNOEA [None]
  - FEELING HOT [None]
  - FLUSHING [None]
  - HYPERSENSITIVITY [None]
